FAERS Safety Report 25634895 (Version 1)
Quarter: 2025Q3

REPORT INFORMATION
  Report Type: Spontaneous
  Country: JP (occurrence: JP)
  Receive Date: 20250801
  Receipt Date: 20250801
  Transmission Date: 20251021
  Serious: Yes (Hospitalization, Other)
  Sender: MERCK SHARP & DOHME LLC
  Company Number: JP-009507513-2296833

PATIENT
  Age: 68 Year
  Sex: Male

DRUGS (3)
  1. KEYTRUDA [Suspect]
     Active Substance: PEMBROLIZUMAB
     Indication: Squamous cell carcinoma of lung
     Dosage: 200 MG, Q3W, STRENGTH:100MG
     Route: 041
     Dates: start: 20250609
  2. CARBOPLATIN [Suspect]
     Active Substance: CARBOPLATIN
     Indication: Squamous cell carcinoma of lung
     Dates: start: 20250609
  3. ABRAXANE [Suspect]
     Active Substance: PACLITAXEL
     Indication: Squamous cell carcinoma of lung
     Dates: start: 20250609

REACTIONS (3)
  - Neutropenia [Recovered/Resolved]
  - Wrong technique in product usage process [Unknown]
  - Hospitalisation [Unknown]

NARRATIVE: CASE EVENT DATE: 20250101
